FAERS Safety Report 23352616 (Version 1)
Quarter: 2023Q4

REPORT INFORMATION
  Report Type: Spontaneous
  Country: US (occurrence: US)
  Receive Date: 20231230
  Receipt Date: 20231230
  Transmission Date: 20240110
  Serious: No
  Sender: FDA-Public Use
  Company Number: US-ABBVIE-5563600

PATIENT
  Age: 60 Year
  Sex: Female
  Weight: 83.914 kg

DRUGS (2)
  1. ESTRACE [Suspect]
     Active Substance: ESTRADIOL
     Indication: Hormone replacement therapy
     Dosage: FORM STRENGTH: 0.01 PERCENT
     Route: 065
     Dates: start: 2009, end: 20231215
  2. ESTRACE [Suspect]
     Active Substance: ESTRADIOL
     Indication: Hormone replacement therapy
     Dosage: FORM STRENGTH: 0.01 PERCENT
     Route: 065
     Dates: start: 20231218

REACTIONS (6)
  - Migraine [Recovered/Resolved]
  - Urinary incontinence [Recovered/Resolved]
  - Hot flush [Recovered/Resolved]
  - Drug ineffective [Not Recovered/Not Resolved]
  - Insomnia [Recovered/Resolved]
  - Nausea [Recovered/Resolved]

NARRATIVE: CASE EVENT DATE: 20231201
